FAERS Safety Report 20141780 (Version 1)
Quarter: 2021Q4

REPORT INFORMATION
  Report Type: Spontaneous
  Country: IT (occurrence: IT)
  Receive Date: 20211202
  Receipt Date: 20211202
  Transmission Date: 20220303
  Serious: Yes (Hospitalization, Other)
  Sender: FDA-Public Use
  Company Number: IT-SA-2021SA340730

PATIENT
  Age: 17 Year
  Sex: Female

DRUGS (2)
  1. RAMIPRIL [Suspect]
     Active Substance: RAMIPRIL
     Indication: Proteinuria
     Dosage: UNK
  2. RAMIPRIL [Suspect]
     Active Substance: RAMIPRIL
     Indication: Glomerulonephritis

REACTIONS (4)
  - Thrombocytopenia [Recovering/Resolving]
  - Chronic kidney disease [Unknown]
  - Haemolytic anaemia [Recovering/Resolving]
  - End stage renal disease [Unknown]
